FAERS Safety Report 9720273 (Version 4)
Quarter: 2014Q1

REPORT INFORMATION
  Report Type: Spontaneous
  Country: US (occurrence: US)
  Receive Date: 20131129
  Receipt Date: 20140318
  Transmission Date: 20141002
  Serious: No
  Sender: FDA-Public Use
  Company Number: US-009507513-1311USA012064

PATIENT
  Age: 67 Year
  Sex: Male

DRUGS (3)
  1. PEGINTRON [Suspect]
     Indication: HEPATITIS C
     Dosage: 150 MICROGRAM, QW
     Route: 058
     Dates: start: 201310
  2. PEGINTRON [Suspect]
     Dosage: 150 MICROGRAM, QW
     Route: 058
     Dates: start: 2013
  3. REBETOL [Suspect]
     Indication: HEPATITIS C
     Dosage: UNK
     Route: 048
     Dates: start: 201310

REACTIONS (10)
  - Haemorrhage [Recovering/Resolving]
  - Decreased appetite [Unknown]
  - Malaise [Recovering/Resolving]
  - Expired drug administered [Unknown]
  - Product quality issue [Unknown]
  - Underdose [Unknown]
  - Drug administration error [Unknown]
  - Product quality issue [Unknown]
  - Haemorrhage [Unknown]
  - Underdose [Unknown]
